FAERS Safety Report 23860242 (Version 1)
Quarter: 2024Q2

REPORT INFORMATION
  Report Type: Report from Study
  Country: CA (occurrence: CA)
  Receive Date: 20240515
  Receipt Date: 20240515
  Transmission Date: 20240716
  Serious: Yes (Hospitalization, Other)
  Sender: FDA-Public Use
  Company Number: CA-JNJFOC-20231224383

PATIENT
  Age: 58 Year
  Sex: Male

DRUGS (1)
  1. IMBRUVICA [Suspect]
     Active Substance: IBRUTINIB
     Indication: Chronic lymphocytic leukaemia
     Route: 048
     Dates: start: 20211221

REACTIONS (3)
  - Pulmonary oedema [Not Recovered/Not Resolved]
  - Lung neoplasm malignant [Unknown]
  - Colon cancer [Unknown]

NARRATIVE: CASE EVENT DATE: 20240505
